FAERS Safety Report 12330990 (Version 1)
Quarter: 2016Q2

REPORT INFORMATION
  Report Type: Spontaneous
  Country: US (occurrence: None)
  Receive Date: 20160503
  Receipt Date: 20160503
  Transmission Date: 20160815
  Serious: No
  Sender: FDA-Public Use
  Company Number: None

PATIENT
  Age: 76 Year
  Sex: Female

DRUGS (15)
  1. LETROZOLE. [Concomitant]
     Active Substance: LETROZOLE
  2. SERTRALINE [Concomitant]
     Active Substance: SERTRALINE HYDROCHLORIDE
  3. AFINITOR [Suspect]
     Active Substance: EVEROLIMUS
     Indication: BREAST CANCER
     Route: 048
     Dates: start: 20160406
  4. LIPOCI ACID [Concomitant]
  5. MULTI-VITE [Concomitant]
  6. METFORMIN [Concomitant]
     Active Substance: METFORMIN HYDROCHLORIDE
  7. VITAMIN B6 [Concomitant]
     Active Substance: PYRIDOXINE HYDROCHLORIDE
  8. FENOFIBRATE. [Concomitant]
     Active Substance: FENOFIBRATE
  9. ATENOLOL. [Concomitant]
     Active Substance: ATENOLOL
  10. BIOTIN [Concomitant]
     Active Substance: BIOTIN
  11. OXYCODONE [Concomitant]
     Active Substance: OXYCODONE
  12. HCTZ [Concomitant]
     Active Substance: HYDROCHLOROTHIAZIDE
  13. COLON FORMULA [Concomitant]
  14. POTASSIUM [Concomitant]
     Active Substance: POTASSIUM
  15. GABAPENTIN. [Concomitant]
     Active Substance: GABAPENTIN

REACTIONS (2)
  - Lymphadenopathy [None]
  - Oral pain [None]

NARRATIVE: CASE EVENT DATE: 201604
